FAERS Safety Report 8431752-1 (Version None)
Quarter: 2012Q2

REPORT INFORMATION
  Report Type: 
  Country: None (occurrence: None)
  Receive Date: 20120607
  Receipt Date: 20120607
  Transmission Date: 20120825
  Serious: Yes (Hospitalization)
  Sender: FDA-Public Use
  Company Number: None

PATIENT
  Sex: Male
  Weight: 49.5 kg

DRUGS (7)
  1. PEG-L-ASPARAGINASE (K-H) [Suspect]
     Dosage: 7500 IU
  2. METHOTREXATE [Suspect]
     Dosage: TOTAL DOSE,690 MG  675 MG IV   15MG INTRATHECAL
     Route: 042
  3. ACYCLOVIR [Concomitant]
  4. GEMFIBROZIL [Concomitant]
  5. VINCRISTINE [Suspect]
     Dosage: 6 MG
  6. ACETAMINOPHEN [Concomitant]
  7. PANTOPRAZOLE [Concomitant]

REACTIONS (1)
  - DEEP VEIN THROMBOSIS [None]
